FAERS Safety Report 12880138 (Version 1)
Quarter: 2016Q4

REPORT INFORMATION
  Report Type: Spontaneous
  Country: RU (occurrence: RU)
  Receive Date: 20161025
  Receipt Date: 20161025
  Transmission Date: 20170207
  Serious: Yes (Other)
  Sender: FDA-Public Use
  Company Number: RU-ROCHE-1845499

PATIENT
  Age: 37 Year
  Sex: Female

DRUGS (1)
  1. HERCEPTIN [Suspect]
     Active Substance: TRASTUZUMAB
     Indication: BREAST CANCER
     Dosage: 16 COURSES
     Route: 065
     Dates: start: 2014

REACTIONS (1)
  - Breast cancer recurrent [Recovering/Resolving]

NARRATIVE: CASE EVENT DATE: 2016
